FAERS Safety Report 14779961 (Version 1)
Quarter: 2018Q2

REPORT INFORMATION
  Report Type: Spontaneous
  Country: ES (occurrence: ES)
  Receive Date: 20180419
  Receipt Date: 20180419
  Transmission Date: 20180711
  Serious: Yes (Other)
  Sender: FDA-Public Use
  Company Number: ES-B.I. PHARMACEUTICALS,INC./RIDGEFIELD-2018-12-001417

PATIENT
  Age: 75 Year
  Sex: Female
  Weight: 90 kg

DRUGS (2)
  1. SYNJARDY [Suspect]
     Active Substance: EMPAGLIFLOZIN\METFORMIN HYDROCHLORIDE
     Indication: TYPE 2 DIABETES MELLITUS
     Dosage: STRENGTH: 5MG/1000MG ? 60 TABLETS
     Route: 048
     Dates: start: 20180213, end: 20180406
  2. TRULICITY [Interacting]
     Active Substance: DULAGLUTIDE
     Indication: PRODUCT USED FOR UNKNOWN INDICATION
     Dosage: INJECTABLE SOLUTION IN PRE-FILLED PENS 4 PRE-FILLED PENS
     Route: 058
     Dates: start: 2018

REACTIONS (3)
  - Dizziness [Recovering/Resolving]
  - Chest discomfort [Recovering/Resolving]
  - Muscular weakness [Recovering/Resolving]

NARRATIVE: CASE EVENT DATE: 201804
